FAERS Safety Report 19631214 (Version 2)
Quarter: 2021Q4

REPORT INFORMATION
  Report Type: Spontaneous
  Country: FR (occurrence: FR)
  Receive Date: 20210729
  Receipt Date: 20211102
  Transmission Date: 20220303
  Serious: Yes (Death, Other)
  Sender: FDA-Public Use
  Company Number: FR-ROCHE-2828593

PATIENT
  Age: 76 Year
  Sex: Female
  Weight: 57 kg

DRUGS (21)
  1. URAPIDIL [Suspect]
     Active Substance: URAPIDIL
     Indication: Hypertension
     Dosage: 250 MILLIGRAM, QD
     Route: 065
     Dates: start: 20210407, end: 20210415
  2. DEXAMETHASONE [Suspect]
     Active Substance: DEXAMETHASONE
     Indication: COVID-19
     Dosage: 6 MG, DAILY
     Route: 013
     Dates: start: 20210403, end: 20210406
  3. HEPARIN [Suspect]
     Active Substance: HEPARIN SODIUM
     Indication: Prophylaxis
     Dosage: 25000 INTERNATIONAL UNIT, QD
     Route: 067
     Dates: start: 20210406, end: 20210415
  4. VALACYCLOVIR HYDROCHLORIDE [Suspect]
     Active Substance: VALACYCLOVIR HYDROCHLORIDE
     Indication: Antibiotic prophylaxis
     Dosage: 500 MILLIGRAM, QD
     Route: 048
     Dates: start: 20210405, end: 20210406
  5. VALACYCLOVIR HYDROCHLORIDE [Suspect]
     Active Substance: VALACYCLOVIR HYDROCHLORIDE
     Dosage: 500 MILLIGRAM, QD
     Route: 048
  6. VORICONAZOLE [Suspect]
     Active Substance: VORICONAZOLE
     Indication: Lung disorder
     Dosage: 400 MILLIGRAM, QD
     Route: 042
     Dates: start: 20210403, end: 20210406
  7. MEROPENEM [Suspect]
     Active Substance: MEROPENEM
     Indication: Product used for unknown indication
     Dosage: UNK
     Route: 065
     Dates: start: 20210411
  8. BACTRIM [Suspect]
     Active Substance: SULFAMETHOXAZOLE\TRIMETHOPRIM
     Indication: Antibiotic prophylaxis
     Dosage: 1 DOSAGE FORM, QD
     Route: 042
     Dates: start: 20210405, end: 20210406
  9. AVIBACTAM SODIUM\CEFTAZIDIME [Suspect]
     Active Substance: AVIBACTAM SODIUM\CEFTAZIDIME
     Indication: Lung disorder
     Dosage: 4 GRAM, QD
     Route: 065
     Dates: start: 20210408, end: 20210411
  10. SUFENTANIL [Suspect]
     Active Substance: SUFENTANIL
     Indication: Sedation
     Dosage: 50 MILLIGRAM, DAILY
     Route: 042
     Dates: start: 20210405, end: 20210406
  11. LASIX [Suspect]
     Active Substance: FUROSEMIDE
     Indication: Acute pulmonary oedema
     Dosage: 500 MILLIGRAM, QD
     Route: 042
     Dates: start: 20210405, end: 20210407
  12. CISATRACURIUM [Suspect]
     Active Substance: CISATRACURIUM
     Indication: Sedation
     Dosage: 500 MILLIGRAM, DAILY
     Route: 042
     Dates: start: 20210405, end: 20210406
  13. CEFEPIME [Suspect]
     Active Substance: CEFEPIME HYDROCHLORIDE
     Indication: Pneumonia pneumococcal
     Dosage: 4 GRAM, DAILY
     Route: 042
     Dates: start: 20210331, end: 20210406
  14. LOVENOX [Suspect]
     Active Substance: ENOXAPARIN SODIUM
     Indication: Product used for unknown indication
     Dosage: UNK
     Route: 065
  15. KARDEGIC [Concomitant]
     Active Substance: ASPIRIN DL-LYSINE
     Dosage: UNK
     Route: 065
  16. PREDNISONE [Concomitant]
     Active Substance: PREDNISONE
     Dosage: UNK
     Route: 065
  17. VERAPAMIL HYDROCHLORIDE [Concomitant]
     Active Substance: VERAPAMIL HYDROCHLORIDE
     Dosage: UNK
     Route: 065
  18. PANTOPRAZOLE [Concomitant]
     Active Substance: PANTOPRAZOLE
     Dosage: UNK
     Route: 065
  19. Calcidose [Concomitant]
     Dosage: UNK
     Route: 065
  20. CRESTOR [Concomitant]
     Active Substance: ROSUVASTATIN CALCIUM
     Dosage: UNK
     Route: 065
  21. RILMENIDINE PHOSPHATE [Concomitant]
     Active Substance: RILMENIDINE PHOSPHATE
     Dosage: UNK
     Route: 065

REACTIONS (7)
  - Encephalopathy [Fatal]
  - Toxic encephalopathy [Fatal]
  - COVID-19 [Fatal]
  - Myoclonus [Unknown]
  - Mixed liver injury [Unknown]
  - Multiple organ dysfunction syndrome [Unknown]
  - Off label use [Unknown]

NARRATIVE: CASE EVENT DATE: 20210406
